FAERS Safety Report 7094696-6 (Version None)
Quarter: 2010Q4

REPORT INFORMATION
  Report Type: 
  Country: None (occurrence: None)
  Receive Date: 20101110
  Receipt Date: 20090210
  Transmission Date: 20110411
  Serious: No
  Sender: FDA-Public Use
  Company Number: US-KINGPHARMUSA00001-K200900129

PATIENT
  Sex: Female

DRUGS (2)
  1. LEVOXYL [Suspect]
     Indication: HYPOTHYROIDISM
     Dosage: 112 MCG, UNK
     Route: 048
     Dates: start: 20090201
  2. LEVOXYL [Suspect]
     Dosage: 100 MCG, UNK
     Dates: start: 20090101, end: 20090201

REACTIONS (3)
  - MUSCLE SPASMS [None]
  - SNORING [None]
  - SWOLLEN TONGUE [None]
